FAERS Safety Report 25451017 (Version 5)
Quarter: 2025Q4

REPORT INFORMATION
  Report Type: Spontaneous
  Country: US (occurrence: US)
  Receive Date: 20250618
  Receipt Date: 20251008
  Transmission Date: 20260118
  Serious: No
  Sender: VERTEX
  Company Number: US-VERTEX PHARMACEUTICALS-2025-009635

PATIENT

DRUGS (2)
  1. ALYFTREK [Suspect]
     Active Substance: DEUTIVACAFTOR\TEZACAFTOR\VANZACAFTOR
     Indication: Cystic fibrosis
     Dosage: UNK
     Route: 048
  2. ALYFTREK [Suspect]
     Active Substance: DEUTIVACAFTOR\TEZACAFTOR\VANZACAFTOR
     Dosage: REDUCED DOSE TO HALF
     Route: 048

REACTIONS (12)
  - Arthralgia [Recovering/Resolving]
  - Increased appetite [Recovering/Resolving]
  - Depressed mood [Unknown]
  - Hunger [Not Recovered/Not Resolved]
  - Stress [Unknown]
  - Abdominal discomfort [Unknown]
  - Abdominal distension [Recovering/Resolving]
  - Bowel movement irregularity [Not Recovered/Not Resolved]
  - Bronchial secretion retention [Not Recovered/Not Resolved]
  - Pain in extremity [Unknown]
  - Fatigue [Recovering/Resolving]
  - Productive cough [Not Recovered/Not Resolved]
